FAERS Safety Report 7365870-6 (Version None)
Quarter: 2011Q1

REPORT INFORMATION
  Report Type: 
  Country: None (occurrence: None)
  Receive Date: 20110309
  Receipt Date: 20110228
  Transmission Date: 20110831
  Serious: No
  Sender: FDA-Public Use
  Company Number: BO704173A

PATIENT
  Age: 20 Year
  Sex: Male

DRUGS (2)
  1. CEFTRIAXONE (FORMULATION UNKNOWN) (GEMERIC) (CEFTRIAXONE) [Suspect]
     Indication: GONORRHOEA
  2. AMOXIL [Suspect]
     Indication: GONORRHOEA

REACTIONS (2)
  - TREATMENT FAILURE [None]
  - EXPIRED DRUG ADMINISTERED [None]
